FAERS Safety Report 9749535 (Version 2)
Quarter: 2013Q4

REPORT INFORMATION
  Report Type: Spontaneous
  Country: US (occurrence: US)
  Receive Date: 20131212
  Receipt Date: 20131219
  Transmission Date: 20140711
  Serious: Yes (Hospitalization)
  Sender: FDA-Public Use
  Company Number: US-BAXTER-2013BAX049466

PATIENT
  Sex: Male

DRUGS (1)
  1. DIANEAL LOW CALCIUM [Suspect]
     Indication: CONGENITAL CYSTIC KIDNEY DISEASE
     Route: 033
     Dates: start: 2011, end: 20131204

REACTIONS (1)
  - Hiatus hernia [Recovering/Resolving]
